FAERS Safety Report 9375359 (Version 1)
Quarter: 2013Q2

REPORT INFORMATION
  Report Type: Other
  Country: US (occurrence: US)
  Receive Date: 20130628
  Receipt Date: 20130628
  Transmission Date: 20140414
  Serious: Yes (Hospitalization)
  Sender: FDA-Public Use
  Company Number: US-BRISTOL-MYERS SQUIBB COMPANY-19024736

PATIENT
  Age: 71 Year
  Sex: Female

DRUGS (1)
  1. LEVODOPA + CARBIDOPA [Suspect]

REACTIONS (1)
  - Muscle rigidity [Recovered/Resolved]
